FAERS Safety Report 16301820 (Version 1)
Quarter: 2019Q2

REPORT INFORMATION
  Report Type: Spontaneous
  Country: US (occurrence: US)
  Receive Date: 20190511
  Receipt Date: 20190511
  Transmission Date: 20190711
  Serious: No
  Sender: FDA-Public Use
  Company Number: US-009507513-1905USA000460

PATIENT
  Sex: Male

DRUGS (1)
  1. INTRON A [Suspect]
     Active Substance: INTERFERON ALFA-2B
     Indication: PSORIASIS
     Dosage: STRENGTH :25 MU; 0.5 MILLILITER 3 TIMES PER WEEK (TIW)
     Route: 058
     Dates: start: 2019

REACTIONS (1)
  - Fatigue [Unknown]
